FAERS Safety Report 13446651 (Version 1)
Quarter: 2017Q2

REPORT INFORMATION
  Report Type: Spontaneous
  Country: US (occurrence: US)
  Receive Date: 20170417
  Receipt Date: 20170417
  Transmission Date: 20170830
  Serious: No
  Sender: FDA-Public Use
  Company Number: US-BAYER-2017-072764

PATIENT
  Age: 73 Year
  Sex: Female
  Weight: 59 kg

DRUGS (6)
  1. MAGNESIUM [Concomitant]
     Active Substance: MAGNESIUM
  2. FLAXSEED [Concomitant]
     Active Substance: FLAX SEED
  3. VITAMIN C [Concomitant]
     Active Substance: ASCORBIC ACID
  4. MIRALAX [Suspect]
     Active Substance: POLYETHYLENE GLYCOL 3350
     Indication: COLONOSCOPY
     Route: 048
     Dates: start: 2014, end: 20170410
  5. FOLIC ACID. [Concomitant]
     Active Substance: FOLIC ACID
  6. SELENIUM [Concomitant]
     Active Substance: SELENIUM

REACTIONS (2)
  - Product use in unapproved indication [Unknown]
  - Off label use [Unknown]

NARRATIVE: CASE EVENT DATE: 2014
